FAERS Safety Report 11950526 (Version 2)
Quarter: 2016Q1

REPORT INFORMATION
  Report Type: Spontaneous
  Country: US (occurrence: US)
  Receive Date: 20160126
  Receipt Date: 20160303
  Transmission Date: 20160526
  Serious: No
  Sender: FDA-Public Use
  Company Number: US-PFIZER INC-2016012062

PATIENT
  Age: 65 Year
  Sex: Female

DRUGS (1)
  1. SUTENT [Suspect]
     Active Substance: SUNITINIB MALATE
     Indication: GASTROINTESTINAL STROMAL TUMOUR
     Dosage: 37.5 MG, DAILY, CYCLIC (28 DAYS ON AND 14 DAYS OFF)
     Route: 048
     Dates: start: 20150316

REACTIONS (5)
  - Diarrhoea [Recovered/Resolved]
  - Hyperkeratosis [Recovered/Resolved]
  - Pain in extremity [Recovered/Resolved]
  - Skin disorder [Recovered/Resolved]
  - Oral pain [Recovered/Resolved]
